FAERS Safety Report 7916336-3 (Version None)
Quarter: 2011Q4

REPORT INFORMATION
  Report Type: 
  Country: None (occurrence: None)
  Receive Date: 20111116
  Receipt Date: 20111109
  Transmission Date: 20120403
  Serious: No
  Sender: FDA-Public Use
  Company Number: US-BIOGENIDEC-2011BI042928

PATIENT
  Sex: Male

DRUGS (2)
  1. TYSABRI [Suspect]
     Indication: MULTIPLE SCLEROSIS
     Route: 042
     Dates: start: 20111103
  2. TYSABRI [Suspect]
     Route: 042
     Dates: start: 20070425, end: 20080829

REACTIONS (2)
  - TEMPERATURE INTOLERANCE [None]
  - DRUG SPECIFIC ANTIBODY PRESENT [None]
